FAERS Safety Report 9752697 (Version 4)
Quarter: 2014Q1

REPORT INFORMATION
  Report Type: Spontaneous
  Country: JP (occurrence: JP)
  Receive Date: 20131213
  Receipt Date: 20140205
  Transmission Date: 20141002
  Serious: Yes (Death)
  Sender: FDA-Public Use
  Company Number: JP-ASTELLAS-2013JP013748

PATIENT
  Age: 82 Year
  Sex: Male

DRUGS (6)
  1. BETANIS [Suspect]
     Indication: HYPERTONIC BLADDER
     Dosage: 50 MG, UID/QD
     Route: 048
     Dates: start: 20130430, end: 201305
  2. BETANIS [Suspect]
     Dosage: 50 MG, UID/QD
     Route: 048
     Dates: start: 20131130, end: 20131130
  3. VESICARE [Suspect]
     Indication: HYPERTONIC BLADDER
     Dosage: UNK
     Route: 048
     Dates: start: 201304, end: 20130429
  4. STAYBLA [Concomitant]
     Indication: HYPERTONIC BLADDER
     Dosage: UNK
     Route: 048
     Dates: start: 201304, end: 20130429
  5. AVOLVE [Concomitant]
     Indication: BENIGN PROSTATIC HYPERPLASIA
     Dosage: 0.5 MG, UID/QD
     Route: 048
     Dates: start: 201304
  6. URIEF [Concomitant]
     Indication: BENIGN PROSTATIC HYPERPLASIA
     Dosage: 4 MG, BID
     Route: 048
     Dates: start: 201304

REACTIONS (8)
  - Drug ineffective [Unknown]
  - Hypertonic bladder [Unknown]
  - Palpitations [Fatal]
  - Tachycardia [Fatal]
  - Blood pressure increased [Fatal]
  - Chest pain [Fatal]
  - Insomnia [Unknown]
  - Acute myocardial infarction [Fatal]
